FAERS Safety Report 6660368-2 (Version None)
Quarter: 2010Q1

REPORT INFORMATION
  Report Type: 
  Country: None (occurrence: None)
  Receive Date: 20100330
  Receipt Date: 20100330
  Transmission Date: 20100710
  Serious: Yes (Other)
  Sender: FDA-Public Use
  Company Number: None

PATIENT
  Sex: Female
  Weight: 63.5036 kg

DRUGS (2)
  1. CRESTOR [Suspect]
     Indication: BLOOD CHOLESTEROL ABNORMAL
  2. ZETIA [Suspect]
     Indication: BLOOD CHOLESTEROL ABNORMAL

REACTIONS (4)
  - DIZZINESS [None]
  - GLUCOSE TOLERANCE IMPAIRED [None]
  - HEART RATE INCREASED [None]
  - PALPITATIONS [None]
